FAERS Safety Report 8458287-4 (Version None)
Quarter: 2012Q2

REPORT INFORMATION
  Report Type: 
  Country: None (occurrence: None)
  Receive Date: 20120323
  Receipt Date: 20111021
  Transmission Date: 20120825
  Serious: Yes (Hospitalization)
  Sender: FDA-Public Use
  Company Number: 163-21880-11102603

PATIENT
  Age: 48 Year
  Sex: Female

DRUGS (9)
  1. LISINOPRIL [Concomitant]
  2. FLUTICASONE PROPIONATE [Concomitant]
  3. ZANTAC [Concomitant]
  4. TUMS E-X 750 (CALCIUM CARBONATE) [Concomitant]
  5. MECLIZINE HCL (MECLOZINE HYDROCHLORIDE) [Concomitant]
  6. LORATADINE [Concomitant]
  7. LENALIDOMIDE [Suspect]
     Indication: MULTIPLE MYELOMA
     Dosage: 25 MG, X 21, PO
     Route: 048
     Dates: start: 20100503
  8. NEXIUM [Concomitant]
  9. ACYCLOVIR [Concomitant]

REACTIONS (2)
  - FALL [None]
  - DIZZINESS [None]
